FAERS Safety Report 24669188 (Version 1)
Quarter: 2024Q4

REPORT INFORMATION
  Report Type: Spontaneous
  Country: US (occurrence: None)
  Receive Date: 20241126
  Receipt Date: 20241126
  Transmission Date: 20250115
  Serious: Yes (Other)
  Sender: Public
  Company Number: None

PATIENT
  Age: 72 Year
  Sex: Female

DRUGS (1)
  1. BOSENTAN [Suspect]
     Active Substance: BOSENTAN
     Indication: Raynaud^s phenomenon
     Dosage: FREQUENCY : TWICE A DAY;?
     Route: 048
     Dates: start: 20241126, end: 20241126

REACTIONS (4)
  - Dizziness [None]
  - Dehydration [None]
  - Brain fog [None]
  - Blood pressure decreased [None]

NARRATIVE: CASE EVENT DATE: 20241126
